FAERS Safety Report 7149297-8 (Version None)
Quarter: 2010Q4

REPORT INFORMATION
  Report Type: 
  Country: None (occurrence: None)
  Receive Date: 20101209
  Receipt Date: 20101130
  Transmission Date: 20110411
  Serious: Yes (Hospitalization)
  Sender: FDA-Public Use
  Company Number: US-ASTRAZENECA-2010SE56840

PATIENT
  Age: 43 Year
  Sex: Female
  Weight: 111.1 kg

DRUGS (7)
  1. CRESTOR [Suspect]
     Indication: BLOOD CHOLESTEROL
     Route: 048
     Dates: start: 20100501, end: 20101128
  2. INSULIN [Concomitant]
     Dosage: 70 TWO TIMES A DAY
  3. DIOVAN [Concomitant]
  4. ZANTAC [Concomitant]
  5. ASPIRIN [Concomitant]
  6. ATIVAN [Concomitant]
     Dates: end: 20100901
  7. DIAZEPAM [Concomitant]
     Dosage: BID
     Dates: start: 20101001

REACTIONS (2)
  - COLECTOMY [None]
  - DRUG DOSE OMISSION [None]
